FAERS Safety Report 5742912-2 (Version None)
Quarter: 2008Q2

REPORT INFORMATION
  Report Type: 
  Country: None (occurrence: None)
  Receive Date: 20080515
  Receipt Date: 20080515
  Transmission Date: 20081010
  Serious: No
  Sender: FDA-Public Use
  Company Number: None

PATIENT
  Age: 80 Year
  Sex: Male

DRUGS (1)
  1. DIGITEK  0.125MG  AMIDE PHARMACEUTICAL [Suspect]
     Dosage: 0.125MG  ONCE DAILY PO (DURATION: 2 1/2 YEARS)
     Route: 048

REACTIONS (1)
  - PHARMACEUTICAL PRODUCT COMPLAINT [None]
